FAERS Safety Report 21570586 (Version 2)
Quarter: 2022Q4

REPORT INFORMATION
  Report Type: Spontaneous
  Country: CA (occurrence: CA)
  Receive Date: 20221109
  Receipt Date: 20221215
  Transmission Date: 20230112
  Serious: Yes (Other)
  Sender: FDA-Public Use
  Company Number: CA-AstraZeneca-2022A362446

PATIENT

DRUGS (4)
  1. ZOLADEX [Suspect]
     Active Substance: GOSERELIN ACETATE
     Indication: Product used for unknown indication
     Dosage: UNK
     Route: 058
  2. ZOLADEX [Suspect]
     Active Substance: GOSERELIN ACETATE
     Indication: Product used for unknown indication
     Dosage: UNK
     Route: 065
  3. BICALUTAMIDE [Suspect]
     Active Substance: BICALUTAMIDE
     Indication: Product used for unknown indication
     Dosage: 50 MG, QD
     Route: 065
  4. APALUTAMIDE [Suspect]
     Active Substance: APALUTAMIDE
     Indication: Prostate cancer stage 0
     Dosage: 240 MG, QD
     Route: 048

REACTIONS (8)
  - Mental disorder [Unknown]
  - Depression [Unknown]
  - Blood pressure systolic increased [Unknown]
  - Insomnia [Unknown]
  - Asthenia [Unknown]
  - Dizziness [Unknown]
  - Hot flush [Unknown]
  - Nausea [Unknown]
